FAERS Safety Report 18776621 (Version 1)
Quarter: 2021Q1

REPORT INFORMATION
  Report Type: Spontaneous
  Country: CA (occurrence: CA)
  Receive Date: 20210123
  Receipt Date: 20210123
  Transmission Date: 20210419
  Serious: Yes (Hospitalization)
  Sender: FDA-Public Use
  Company Number: CA-TEVA-2021-CA-1870706

PATIENT
  Age: 7 Year
  Sex: Male

DRUGS (3)
  1. CISPLATIN INJECTION [Suspect]
     Active Substance: CISPLATIN
     Route: 058
  2. VINCRISTINE SULFATE. [Suspect]
     Active Substance: VINCRISTINE SULFATE
     Route: 058
  3. CYCLOPHOSPHAMIDE. [Suspect]
     Active Substance: CYCLOPHOSPHAMIDE
     Route: 058

REACTIONS (1)
  - Febrile neutropenia [Unknown]
